FAERS Safety Report 6409587-0 (Version None)
Quarter: 2009Q4

REPORT INFORMATION
  Report Type: 
  Country: None (occurrence: None)
  Receive Date: 20091020
  Receipt Date: 20091020
  Transmission Date: 20100525
  Serious: No
  Sender: FDA-Public Use
  Company Number: None

PATIENT
  Sex: Male
  Weight: 9.5255 kg

DRUGS (2)
  1. CONCENTRATED TYLENOL INFANT'S DROPS [Suspect]
     Dates: start: 20080620
  2. CONCENTRATED TYLENOL INFANT'S DROPS [Suspect]
     Dates: start: 20080621

REACTIONS (2)
  - MUSCLE TWITCHING [None]
  - PRODUCT QUALITY ISSUE [None]
